FAERS Safety Report 23685550 (Version 1)
Quarter: 2024Q1

REPORT INFORMATION
  Report Type: Spontaneous
  Country: PL (occurrence: PL)
  Receive Date: 20240329
  Receipt Date: 20240329
  Transmission Date: 20240409
  Serious: Yes (Other)
  Sender: FDA-Public Use
  Company Number: PL-ABBVIE-5465295

PATIENT

DRUGS (1)
  1. UPADACITINIB [Suspect]
     Active Substance: UPADACITINIB
     Indication: Colitis ulcerative
     Dosage: 45 MILLIGRAM
     Route: 048

REACTIONS (8)
  - Device related sepsis [Unknown]
  - Lymphopenia [Unknown]
  - Drug ineffective [Unknown]
  - Herpes simplex [Recovered/Resolved]
  - Anaemia [Unknown]
  - Neutropenia [Recovered/Resolved]
  - Blood triglycerides increased [Unknown]
  - Low density lipoprotein increased [Unknown]
